FAERS Safety Report 11708341 (Version 1)
Quarter: 2015Q4

REPORT INFORMATION
  Report Type: Spontaneous
  Country: ES (occurrence: ES)
  Receive Date: 20151107
  Receipt Date: 20151107
  Transmission Date: 20160304
  Serious: Yes (Death, Hospitalization)
  Sender: FDA-Public Use
  Company Number: ES-AUROBINDO-AUR-APL-2015-09944

PATIENT

DRUGS (2)
  1. LEVOFLOXACIN. [Suspect]
     Active Substance: LEVOFLOXACIN
     Indication: PNEUMONIA
     Dosage: 50 MG, DAILY
     Route: 042
  2. ACENOCOUMAROL [Interacting]
     Active Substance: ACENOCOUMAROL
     Indication: PNEUMONIA
     Route: 065

REACTIONS (3)
  - Drug interaction [Unknown]
  - International normalised ratio increased [Recovered/Resolved]
  - Death [Fatal]
